FAERS Safety Report 12445747 (Version 1)
Quarter: 2016Q2

REPORT INFORMATION
  Report Type: Spontaneous
  Country: US (occurrence: US)
  Receive Date: 20160608
  Receipt Date: 20160608
  Transmission Date: 20160815
  Serious: No
  Sender: FDA-Public Use
  Company Number: US-JNJFOC-20160511376

PATIENT
  Age: 54 Year
  Sex: Male
  Weight: 86.18 kg

DRUGS (1)
  1. TYLENOL EXTRA STRENGTH [Suspect]
     Active Substance: ACETAMINOPHEN
     Indication: PAIN
     Dosage: ONE OR TWO CAPLETS
     Route: 048

REACTIONS (1)
  - Fatigue [Recovered/Resolved]
